FAERS Safety Report 8857462 (Version 1)
Quarter: 2012Q4

REPORT INFORMATION
  Report Type: 
  Country: US (occurrence: US)
  Receive Date: 20121024
  Receipt Date: 20121024
  Transmission Date: 20130627
  Serious: Yes (Other)
  Sender: FDA-Public Use
  Company Number: US-ELI_LILLY_AND_COMPANY-USA040875606

PATIENT
  Age: 38 Year
  Sex: Female
  Weight: 74.09 kg

DRUGS (8)
  1. STRATTERA [Suspect]
     Indication: ATTENTION DEFICIT/HYPERACTIVITY DISORDER
     Dosage: 40 mg, daily (1/D)
     Route: 065
     Dates: start: 20040811
  2. STRATTERA [Suspect]
     Dosage: 10 mg, qd
     Dates: start: 2011, end: 2011
  3. ZYPREXA [Suspect]
     Indication: BIPOLAR DISORDER
     Dosage: 5 mg, qd
     Route: 065
  4. ZYPREXA [Suspect]
     Dosage: 10 mg, qd
  5. PROZAC [Suspect]
     Dosage: 40 mg, UNK
  6. CYMBALTA [Suspect]
     Indication: ANXIETY
     Dosage: 20 mg, qd
     Dates: start: 20120912
  7. BUPROPION [Concomitant]
     Dosage: 300 mg, daily (1/D)
     Route: 065
  8. HALCION [Concomitant]
     Dosage: 0.25 mg, as needed

REACTIONS (20)
  - Weight increased [Recovering/Resolving]
  - Intentional self-injury [Unknown]
  - Suicidal ideation [Recovered/Resolved]
  - Suicide attempt [Recovered/Resolved]
  - Suicide attempt [Recovered/Resolved]
  - Suicidal ideation [Recovered/Resolved]
  - Sleep disorder [Not Recovered/Not Resolved]
  - Fatigue [Not Recovered/Not Resolved]
  - Lethargy [Not Recovered/Not Resolved]
  - Drug ineffective [Recovered/Resolved]
  - Psychomotor hyperactivity [Recovered/Resolved]
  - Sexual dysfunction [Recovered/Resolved]
  - Somnolence [Recovered/Resolved]
  - Depression [Unknown]
  - Abnormal behaviour [Unknown]
  - Fatigue [Unknown]
  - Abdominal pain upper [Unknown]
  - Abnormal dreams [Unknown]
  - Hunger [Unknown]
  - Feeling abnormal [Unknown]
